FAERS Safety Report 16014549 (Version 2)
Quarter: 2019Q1

REPORT INFORMATION
  Report Type: Spontaneous
  Country: JP (occurrence: JP)
  Receive Date: 20190227
  Receipt Date: 20190307
  Transmission Date: 20190418
  Serious: Yes (Life-Threatening, Hospitalization)
  Sender: FDA-Public Use
  Company Number: JP-ELI_LILLY_AND_COMPANY-JP201902010913

PATIENT
  Age: 52 Year
  Sex: Male
  Weight: 66 kg

DRUGS (5)
  1. BAYASPIRIN [Concomitant]
     Active Substance: ASPIRIN
     Indication: ACUTE MYOCARDIAL INFARCTION
     Dosage: 100 MG, DAILY
     Route: 048
     Dates: start: 20190113
  2. PRASUGREL HYDROCHLORIDE [Suspect]
     Active Substance: PRASUGREL HYDROCHLORIDE
     Indication: PRODUCT USED FOR UNKNOWN INDICATION
     Dosage: 3.75 MG, DAILY
     Route: 048
     Dates: start: 20190113, end: 20190123
  3. WARFARIN [Concomitant]
     Active Substance: WARFARIN
     Indication: ACUTE MYOCARDIAL INFARCTION
     Dosage: 3 MG, DAILY
     Route: 048
     Dates: start: 20190115
  4. ROSUVASTATIN CALCIUM. [Concomitant]
     Active Substance: ROSUVASTATIN CALCIUM
     Indication: HYPERLIPIDAEMIA
     Dosage: 2.5 MG, DAILY
     Route: 048
     Dates: start: 20190114
  5. NEXIUM ESOMEPRAZOLE MAGNESIUM [Concomitant]
     Indication: DYSPEPSIA
     Dosage: 20 MG, DAILY
     Route: 048

REACTIONS (1)
  - Coronary artery thrombosis [Recovering/Resolving]

NARRATIVE: CASE EVENT DATE: 20190123
